FAERS Safety Report 13080544 (Version 2)
Quarter: 2017Q1

REPORT INFORMATION
  Report Type: Spontaneous
  Country: RU (occurrence: RU)
  Receive Date: 20170103
  Receipt Date: 20170222
  Transmission Date: 20170428
  Serious: Yes (Other)
  Sender: FDA-Public Use
  Company Number: RU-AMGEN-RUSSP2016183424

PATIENT
  Age: 80 Year
  Sex: Female
  Weight: 53 kg

DRUGS (5)
  1. CALCEMIN ADVANCE [Concomitant]
     Active Substance: CALCIUM CARBONATE\MAGNESIUM OXIDE\PREVITAMIN D3\SODIUM BORATE\ZINC OXIDE
     Indication: OSTEOPOROSIS
     Dosage: 2 DF, QD
  2. PROLIA [Suspect]
     Active Substance: DENOSUMAB
     Indication: OSTEOPOROSIS
     Dosage: 60 MG/ML, UNK
     Route: 058
  3. METIPRED [Concomitant]
     Active Substance: METHYLPREDNISOLONE
     Indication: EOSINOPHILIC GRANULOMATOSIS WITH POLYANGIITIS
     Dosage: 4 MG, QD
     Dates: start: 2010
  4. PANANGIN [Concomitant]
     Active Substance: MAGNESIUM ASPARTATE\POTASSIUM ASPARTATE
     Indication: MYOCARDIAL ISCHAEMIA
     Dosage: 1 DF, TID
  5. KREON [Concomitant]
     Active Substance: PANCRELIPASE
     Indication: DUODENAL ULCER
     Dosage: 10000 IU, BID

REACTIONS (11)
  - Headache [Unknown]
  - Vasculitis [Not Recovered/Not Resolved]
  - General physical health deterioration [Not Recovered/Not Resolved]
  - Unevaluable event [Unknown]
  - Eczema [Unknown]
  - Conjunctivitis [Not Recovered/Not Resolved]
  - Vomiting [Unknown]
  - Dermatitis [Not Recovered/Not Resolved]
  - Skin exfoliation [Not Recovered/Not Resolved]
  - Pruritus [Not Recovered/Not Resolved]
  - Flushing [Unknown]

NARRATIVE: CASE EVENT DATE: 201612
